FAERS Safety Report 4750124-4 (Version None)
Quarter: 2005Q3

REPORT INFORMATION
  Report Type: 
  Country: None (occurrence: None)
  Receive Date: 20050823
  Receipt Date: 20050810
  Transmission Date: 20060218
  Serious: No
  Sender: FDA-Public Use
  Company Number: GB-BOEHRINGER INGELHEIM PHARMACEUTICALS, INC.-2005-UK-01526UK

PATIENT
  Age: 71 Year
  Sex: Female

DRUGS (3)
  1. PRAMIPEXOLE [Suspect]
     Indication: PARKINSON'S DISEASE
     Dosage: 0.7MGS TDS
     Dates: start: 20030801
  2. DOMPERIDONE [Concomitant]
     Dosage: 20MGS TDS
  3. SINEMET [Concomitant]
     Dosage: 275MG X2 AND 1/2

REACTIONS (3)
  - ORTHOSTATIC HYPOTENSION [None]
  - SUDDEN ONSET OF SLEEP [None]
  - TRANSIENT ISCHAEMIC ATTACK [None]
